FAERS Safety Report 9119058 (Version 4)
Quarter: 2013Q4

REPORT INFORMATION
  Report Type: Spontaneous
  Country: DE (occurrence: DE)
  Receive Date: 20130226
  Receipt Date: 20131107
  Transmission Date: 20140711
  Serious: Yes (Other)
  Sender: FDA-Public Use
  Company Number: PHHY2013DE017455

PATIENT
  Sex: Male
  Weight: 67 kg

DRUGS (5)
  1. TASIGNA [Suspect]
     Indication: CHRONIC MYELOID LEUKAEMIA
     Dosage: 600 MG, DAILY (200 MG MORNING AND 400 MG EVENING)
     Route: 048
     Dates: start: 201010
  2. TASIGNA [Suspect]
     Dosage: UNK UKN, UNK
     Route: 048
     Dates: end: 20130821
  3. PREDNISOLONE [Concomitant]
     Dosage: 2 MG, BID
     Dates: start: 20121021
  4. ROCEPHIN [Concomitant]
     Indication: ARTHRITIS
     Dosage: 2 G, DAILY
     Route: 042
     Dates: start: 20120830, end: 20120905
  5. DICLOFENAC [Concomitant]
     Indication: RHEUMATIC DISORDER
     Dosage: 50 MG, DAILY
     Route: 048
     Dates: start: 20120907, end: 20121109

REACTIONS (7)
  - Polymyalgia rheumatica [Recovered/Resolved]
  - Pain in extremity [Recovered/Resolved]
  - Back pain [Recovered/Resolved]
  - Arthralgia [Recovered/Resolved]
  - Myalgia [Recovered/Resolved]
  - Pain of skin [Recovered/Resolved]
  - Pain [Recovered/Resolved]
